FAERS Safety Report 8136088-4 (Version None)
Quarter: 2012Q1

REPORT INFORMATION
  Report Type: 
  Country: None (occurrence: None)
  Receive Date: 20120214
  Receipt Date: 20120206
  Transmission Date: 20120608
  Serious: Yes (Other)
  Sender: FDA-Public Use
  Company Number: NL-ABBOTT-12P-114-0902639-00

PATIENT
  Sex: Female
  Weight: 67 kg

DRUGS (2)
  1. LOSARTAN/HYDROCHLOORTHIAZIDE [Concomitant]
     Indication: HYPERTENSION
     Dosage: OMHULD 50/12.5MG
     Route: 048
     Dates: start: 20070101
  2. LEUPROLIDE ACETATE [Suspect]
     Indication: MENORRHAGIA
     Route: 058
     Dates: start: 20111001

REACTIONS (8)
  - METRORRHAGIA [None]
  - INSOMNIA [None]
  - ARTHRALGIA [None]
  - ALOPECIA [None]
  - HOT FLUSH [None]
  - NIGHT SWEATS [None]
  - BLOOD PRESSURE INCREASED [None]
  - FATIGUE [None]
